FAERS Safety Report 18308877 (Version 1)
Quarter: 2020Q3

REPORT INFORMATION
  Report Type: Spontaneous
  Country: US (occurrence: US)
  Receive Date: 20200924
  Receipt Date: 20200924
  Transmission Date: 20201103
  Serious: No
  Sender: FDA-Public Use
  Company Number: US-PFIZER INC-2020365097

PATIENT
  Age: 84 Year
  Sex: Male
  Weight: 99.79 kg

DRUGS (1)
  1. LATANOPROST. [Suspect]
     Active Substance: LATANOPROST
     Indication: INTRAOCULAR PRESSURE INCREASED
     Dosage: UNK, DAILY (125 MCG/2.5 ML; 1 DROP IN THE EYES IN THE EVENING)
     Route: 047
     Dates: start: 2020, end: 202009

REACTIONS (6)
  - Eye irritation [Recovered/Resolved]
  - Foreign body sensation in eyes [Recovered/Resolved]
  - Temporomandibular joint syndrome [Recovered/Resolved]
  - Memory impairment [Unknown]
  - Visual impairment [Recovered/Resolved]
  - Eye disorder [Recovered/Resolved]

NARRATIVE: CASE EVENT DATE: 2020
